FAERS Safety Report 19262673 (Version 1)
Quarter: 2021Q2

REPORT INFORMATION
  Report Type: Spontaneous
  Country: CN (occurrence: CN)
  Receive Date: 20210517
  Receipt Date: 20210517
  Transmission Date: 20210717
  Serious: Yes (Other)
  Sender: FDA-Public Use
  Company Number: CN-SPECGX-T202101157

PATIENT
  Age: 70 Year
  Sex: Male
  Weight: 54 kg

DRUGS (4)
  1. OXYCODONE/ACETAMINOPHEN [Suspect]
     Active Substance: ACETAMINOPHEN\OXYCODONE HYDROCHLORIDE
     Indication: ANALGESIC THERAPY
     Dosage: 330 MILLIGRAM, QD
     Route: 048
     Dates: start: 20210421, end: 20210424
  2. GABAPENTIN. [Suspect]
     Active Substance: GABAPENTIN
     Dosage: 0.3 GRAM, BID
     Route: 048
     Dates: start: 20210421, end: 202104
  3. PREGABALIN. [Suspect]
     Active Substance: PREGABALIN
     Indication: ANALGESIC THERAPY
     Dosage: 75 MILLIGRAM, BID
     Route: 048
     Dates: start: 20210419, end: 20210424
  4. GABAPENTIN. [Suspect]
     Active Substance: GABAPENTIN
     Indication: ANALGESIC THERAPY
     Dosage: 0.3 GRAM, QD
     Route: 048
     Dates: start: 20210420, end: 20210421

REACTIONS (2)
  - Pyrexia [Unknown]
  - Extrapyramidal disorder [Recovering/Resolving]

NARRATIVE: CASE EVENT DATE: 20210424
